FAERS Safety Report 8413423-0 (Version None)
Quarter: 2012Q2

REPORT INFORMATION
  Report Type: 
  Country: None (occurrence: None)
  Receive Date: 20120605
  Receipt Date: 20120602
  Transmission Date: 20120825
  Serious: Yes (Other)
  Sender: FDA-Public Use
  Company Number: US-PFIZER INC-2012127335

PATIENT
  Sex: Male
  Weight: 63.492 kg

DRUGS (5)
  1. CAVERJECT [Suspect]
     Dosage: 10 MG, AS NEEDED
     Dates: start: 19960101
  2. WELLBUTRIN [Concomitant]
     Indication: BIPOLAR I DISORDER
     Dosage: 150 MG, 2X/DAY
  3. LITHIUM [Concomitant]
     Indication: BIPOLAR I DISORDER
     Dosage: 300 MG, 3X/DAY
  4. CAVERJECT [Suspect]
     Indication: ERECTILE DYSFUNCTION
     Dosage: 20 MG/ML AS NEEDED
  5. CAVERJECT [Suspect]
     Dosage: 20 MG, AS NEEDED
     Dates: start: 20100101

REACTIONS (5)
  - POOR QUALITY DRUG ADMINISTERED [None]
  - PENIS DISORDER [None]
  - EXPIRED DRUG ADMINISTERED [None]
  - DRUG INEFFECTIVE [None]
  - DRUG EFFECT DECREASED [None]
